FAERS Safety Report 9131841 (Version 1)
Quarter: 2013Q1

REPORT INFORMATION
  Report Type: Report from Study
  Country: US (occurrence: US)
  Receive Date: 20130301
  Receipt Date: 20130301
  Transmission Date: 20140127
  Serious: No
  Sender: FDA-Public Use
  Company Number: US-MYLANLABS-2012S1016982

PATIENT
  Age: 16 Year
  Sex: Female
  Weight: 52.75 kg

DRUGS (1)
  1. AMNESTEEM CAPSULES [Suspect]
     Indication: ACNE
     Route: 048
     Dates: start: 20120402, end: 20120814

REACTIONS (2)
  - Mood swings [Recovered/Resolved]
  - Depressed mood [Recovered/Resolved]
